FAERS Safety Report 6066157-4 (Version None)
Quarter: 2009Q1

REPORT INFORMATION
  Report Type: 
  Country: None (occurrence: None)
  Receive Date: 20090130
  Receipt Date: 20090122
  Transmission Date: 20090719
  Serious: Yes (Other)
  Sender: FDA-Public Use
  Company Number: FRP09000119

PATIENT
  Age: 68 Year
  Sex: Female

DRUGS (5)
  1. ACTONEL [Suspect]
     Indication: OSTEOPOROSIS
     Dosage: 35 MG, 1/WEEK, ORAL
     Route: 048
     Dates: start: 20081201, end: 20090101
  2. LEVOTHYROXINE SODIUM [Concomitant]
  3. STABLON (TIANEPTINE) [Concomitant]
  4. XANAX [Concomitant]
  5. PRAXILENE (NAFTIDROFURYL OXALATE) [Concomitant]

REACTIONS (1)
  - FACIAL PALSY [None]
